FAERS Safety Report 23443951 (Version 2)
Quarter: 2024Q1

REPORT INFORMATION
  Report Type: Spontaneous
  Country: JP (occurrence: JP)
  Receive Date: 20240125
  Receipt Date: 20240215
  Transmission Date: 20240410
  Serious: Yes (Death, Other)
  Sender: FDA-Public Use
  Company Number: JP-TAKEDA-2024TJP000865

PATIENT
  Age: 67 Year
  Sex: Male
  Weight: 62.3 kg

DRUGS (4)
  1. CABOMETYX [Suspect]
     Active Substance: CABOZANTINIB S-MALATE
     Indication: Hepatocellular carcinoma
     Dosage: 40 MG, QD
     Route: 065
     Dates: start: 20221129, end: 20230129
  2. CABOMETYX [Suspect]
     Active Substance: CABOZANTINIB S-MALATE
     Dosage: 20 MG, QD
     Route: 065
     Dates: start: 20230221, end: 20230327
  3. MICARDIS [Concomitant]
     Active Substance: TELMISARTAN
     Indication: Hepatocellular carcinoma
     Dosage: UNK
     Route: 065
     Dates: start: 20221213, end: 20230314
  4. LOXOPROFEN [Concomitant]
     Active Substance: LOXOPROFEN
     Indication: Hepatocellular carcinoma
     Dosage: UNK
     Route: 065
     Dates: start: 20221213, end: 20230314

REACTIONS (1)
  - Death [Fatal]

NARRATIVE: CASE EVENT DATE: 20230817
